FAERS Safety Report 15689971 (Version 1)
Quarter: 2018Q4

REPORT INFORMATION
  Report Type: Spontaneous
  Country: IT (occurrence: IT)
  Receive Date: 20181205
  Receipt Date: 20181205
  Transmission Date: 20190205
  Serious: Yes (Other)
  Sender: FDA-Public Use
  Company Number: IT-PFIZER INC-HOS17787

PATIENT
  Age: 46 Year
  Sex: Female

DRUGS (2)
  1. ANZATAX (PACLITAXEL) [Suspect]
     Active Substance: PACLITAXEL
     Indication: UTERINE CANCER
     Dosage: 280 MG, CYCLIC
     Route: 042
     Dates: start: 20070613, end: 20070927
  2. CARBOPLATIN. [Concomitant]
     Active Substance: CARBOPLATIN
     Dosage: 625 MG, FREQ: FREQ UNK
     Route: 042
     Dates: start: 20070613, end: 20070927

REACTIONS (3)
  - Back pain [Unknown]
  - Flushing [Unknown]
  - Malaise [Unknown]

NARRATIVE: CASE EVENT DATE: 20070709
